FAERS Safety Report 9214248 (Version 1)
Quarter: 2013Q2

REPORT INFORMATION
  Report Type: Spontaneous
  Country: US (occurrence: None)
  Receive Date: 20130404
  Receipt Date: 20130404
  Transmission Date: 20140414
  Serious: No
  Sender: FDA-Public Use
  Company Number: None

PATIENT
  Age: 67 Year
  Sex: Male
  Weight: 68.04 kg

DRUGS (1)
  1. VALSARTAN-HCTZ [Suspect]
     Indication: HYPERTENSION
     Dosage: VALSARTAN/HCTZ 320/25 1 DAILY ORAL
     Route: 048
     Dates: start: 201301, end: 201302

REACTIONS (2)
  - Blood pressure increased [None]
  - Product substitution issue [None]
